FAERS Safety Report 8609597-9 (Version None)
Quarter: 2012Q3

REPORT INFORMATION
  Report Type: 
  Country: None (occurrence: None)
  Receive Date: 20120821
  Receipt Date: 20120813
  Transmission Date: 20120928
  Serious: No
  Sender: FDA-Public Use
  Company Number: US-ASTRAZENECA-2012SE56996

PATIENT
  Age: 73 Year
  Sex: Female

DRUGS (2)
  1. BRILINTA [Suspect]
     Indication: THROMBOSIS PROPHYLAXIS
     Route: 048
  2. BRILINTA [Suspect]
     Dosage: 180MG OF THE MEDICATION, ONE TIME 90MG DOSE, 12 HOURS LATER.
     Route: 048

REACTIONS (1)
  - VOMITING [None]
